FAERS Safety Report 5129593-6 (Version None)
Quarter: 2006Q4

REPORT INFORMATION
  Report Type: 
  Country: None (occurrence: None)
  Receive Date: 20061012
  Receipt Date: 20061003
  Transmission Date: 20070319
  Serious: Yes (Other)
  Sender: FDA-Public Use
  Company Number: 236472K06USA

PATIENT
  Age: 52 Year
  Sex: Female
  Weight: 51.2565 kg

DRUGS (2)
  1. REBIF [Suspect]
     Indication: MULTIPLE SCLEROSIS
     Dosage: 44 MCG, 3 IN 1 WEEKS, SUBCUTANEOUS
     Route: 058
     Dates: start: 20040526
  2. PAXIL [Concomitant]

REACTIONS (5)
  - FAECAL INCONTINENCE [None]
  - GASTROINTESTINAL DISORDER [None]
  - PANCREATIC MASS [None]
  - STOMACH DISCOMFORT [None]
  - WEIGHT DECREASED [None]
